FAERS Safety Report 8916200 (Version 1)
Quarter: 2012Q4

REPORT INFORMATION
  Report Type: 
  Country: DE (occurrence: DE)
  Receive Date: 20121120
  Receipt Date: 20121120
  Transmission Date: 20130627
  Serious: Yes (Death, Life-Threatening, Hospitalization, Other)
  Sender: FDA-Public Use
  Company Number: DE-ELI_LILLY_AND_COMPANY-DE201211001956

PATIENT
  Age: 20 Year
  Sex: Male

DRUGS (6)
  1. ZYPREXA [Suspect]
     Indication: PSYCHOTIC DISORDER
     Dosage: 2.5 mg, UNK
  2. SEROQUEL [Concomitant]
     Indication: PSYCHOTIC DISORDER
     Dosage: 400 mg, UNK
     Route: 048
     Dates: end: 20111107
  3. HALOPERIDOL [Concomitant]
     Indication: PSYCHOTIC DISORDER
     Dosage: 10 mg, UNK
     Route: 048
  4. DIAZEPAM [Concomitant]
     Indication: PSYCHOTIC DISORDER
     Dosage: 20 mg, UNK
     Route: 048
  5. TAVOR [Concomitant]
     Indication: PSYCHOTIC DISORDER
     Route: 048
  6. ZOPICLONE [Concomitant]
     Indication: INITIAL INSOMNIA
     Dosage: UNK UNK, single

REACTIONS (9)
  - Death [Fatal]
  - Loss of consciousness [Not Recovered/Not Resolved]
  - Suicide attempt [Unknown]
  - Vomiting [Unknown]
  - Gastrointestinal obstruction [Unknown]
  - Tachycardia [Unknown]
  - Electrocardiogram QT prolonged [Unknown]
  - Bundle branch block right [Unknown]
  - Dizziness [Unknown]
